FAERS Safety Report 20790330 (Version 5)
Quarter: 2022Q3

REPORT INFORMATION
  Report Type: Spontaneous
  Country: US (occurrence: US)
  Receive Date: 20220505
  Receipt Date: 20220812
  Transmission Date: 20221027
  Serious: No
  Sender: FDA-Public Use
  Company Number: US-PFIZER INC-202200642683

PATIENT
  Age: 71 Year
  Sex: Female

DRUGS (2)
  1. VFEND [Suspect]
     Active Substance: VORICONAZOLE
     Indication: Pneumonia fungal
     Dosage: 150 MG, 2X/DAY (TAKE 3 TABLETS BY MOUTH 2 (TWO) TIMES DAILY FOR 21 DAYS. QTY 126)
     Route: 048
  2. VFEND [Suspect]
     Active Substance: VORICONAZOLE
     Dosage: 150 MG, 2X/DAY (TAKE 3 50 MG TABLETS BID, QTY 360)

REACTIONS (1)
  - Therapeutic product effect delayed [Unknown]
